FAERS Safety Report 5553354-7 (Version None)
Quarter: 2007Q4

REPORT INFORMATION
  Report Type: 
  Country: None (occurrence: None)
  Receive Date: 20071212
  Receipt Date: 20071212
  Transmission Date: 20080405
  Serious: Yes (Life-Threatening)
  Sender: FDA-Public Use
  Company Number: None

PATIENT
  Age: 40 Year
  Sex: Female
  Weight: 61.2356 kg

DRUGS (2)
  1. METOCLOPRAMIDE [Suspect]
     Indication: CONSTIPATION
     Dosage: 1 TABLET 2X A DAY
     Dates: start: 20070818, end: 20071019
  2. METOCLOPRAMIDE [Suspect]
     Indication: IRRITABLE BOWEL SYNDROME
     Dosage: 1 TABLET 2X A DAY
     Dates: start: 20070818, end: 20071019

REACTIONS (6)
  - ANXIETY [None]
  - DECREASED INTEREST [None]
  - DEPRESSION [None]
  - FEELING OF BODY TEMPERATURE CHANGE [None]
  - PANIC DISORDER [None]
  - SUICIDAL IDEATION [None]
